FAERS Safety Report 7678614-5 (Version None)
Quarter: 2011Q3

REPORT INFORMATION
  Report Type: 
  Country: None (occurrence: None)
  Receive Date: 20110811
  Receipt Date: 20110802
  Transmission Date: 20111222
  Serious: Yes (Death, Other)
  Sender: FDA-Public Use
  Company Number: JP-BAYER-2011-065684

PATIENT
  Age: 85 Year
  Sex: Male

DRUGS (4)
  1. ASPIRIN [Suspect]
     Indication: CEREBRAL INFARCTION
     Dosage: UNK
     Route: 048
     Dates: end: 20100101
  2. ASPIRIN [Suspect]
     Indication: ATRIAL FIBRILLATION
     Dosage: UNK
     Route: 048
     Dates: start: 20100101
  3. WARFARIN SODIUM [Suspect]
     Indication: CEREBRAL INFARCTION
     Dosage: UNK
     Route: 048
     Dates: end: 20100101
  4. WARFARIN SODIUM [Suspect]
     Indication: ATRIAL FIBRILLATION
     Dosage: UNK
     Route: 048
     Dates: start: 20100101

REACTIONS (2)
  - GASTROINTESTINAL ANGIODYSPLASIA [None]
  - ANASTOMOTIC HAEMORRHAGE [None]
